FAERS Safety Report 9175323 (Version 1)
Quarter: 2013Q1

REPORT INFORMATION
  Report Type: Spontaneous
  Country: US (occurrence: US)
  Receive Date: 20130320
  Receipt Date: 20130320
  Transmission Date: 20140127
  Serious: No
  Sender: FDA-Public Use
  Company Number: US-BAYER-2013-035100

PATIENT
  Age: 77 Year
  Sex: Male
  Weight: 79.37 kg

DRUGS (3)
  1. ALEVE [Suspect]
     Indication: ARTHRITIS
     Dosage: 1 DF, BID
     Route: 048
  2. MULTIVITAMIN [Concomitant]
  3. OSTEO BI-FLEX [Concomitant]

REACTIONS (1)
  - Incorrect drug administration duration [Not Recovered/Not Resolved]
